FAERS Safety Report 4723501-5 (Version None)
Quarter: 2005Q3

REPORT INFORMATION
  Report Type: 
  Country: None (occurrence: None)
  Receive Date: 20050725
  Receipt Date: 20041103
  Transmission Date: 20060218
  Serious: No
  Sender: FDA-Public Use
  Company Number: US-GLAXOSMITHKLINE-A0532570A

PATIENT
  Sex: Female

DRUGS (3)
  1. DYAZIDE [Suspect]
     Dosage: 25MG PER DAY
     Route: 048
  2. VERAPAMIL [Concomitant]
  3. CORTAID [Concomitant]

REACTIONS (2)
  - DIFFICULTY IN WALKING [None]
  - OEDEMA PERIPHERAL [None]
